FAERS Safety Report 5134540-7 (Version None)
Quarter: 2006Q4

REPORT INFORMATION
  Report Type: 
  Country: None (occurrence: None)
  Receive Date: 20061019
  Receipt Date: 20061011
  Transmission Date: 20070319
  Serious: Yes (Hospitalization)
  Sender: FDA-Public Use
  Company Number: 2006-05342

PATIENT
  Sex: Male

DRUGS (1)
  1. TRELSTAR LA (WITH CLIP'N'JECT) (WATSON LABORATORIES) (TRIPTORELIN PAMO [Suspect]
     Indication: PROSTATE CANCER
     Dosage: 11.25 MG, Q3 MONTHS

REACTIONS (2)
  - CARDIAC FAILURE [None]
  - PULMONARY OEDEMA [None]
